FAERS Safety Report 21218676 (Version 1)
Quarter: 2022Q3

REPORT INFORMATION
  Report Type: Spontaneous
  Country: CA (occurrence: CA)
  Receive Date: 20220816
  Receipt Date: 20220816
  Transmission Date: 20221027
  Serious: Yes (Disabling, Other)
  Sender: FDA-Public Use
  Company Number: CA-JNJFOC-20220826666

PATIENT
  Age: 45 Year
  Sex: Female
  Weight: 74 kg

DRUGS (1)
  1. SPORANOX [Suspect]
     Active Substance: ITRACONAZOLE
     Indication: Onychomycosis
     Route: 048

REACTIONS (4)
  - Brain oedema [Recovered/Resolved]
  - Swelling [Recovered/Resolved]
  - Deafness unilateral [Recovered/Resolved]
  - Hypoaesthesia [Recovered/Resolved]
